FAERS Safety Report 19481803 (Version 1)
Quarter: 2021Q3

REPORT INFORMATION
  Report Type: Spontaneous
  Country: US (occurrence: US)
  Receive Date: 20210701
  Receipt Date: 20210701
  Transmission Date: 20211014
  Serious: No
  Sender: FDA-Public Use
  Company Number: US-KEDRION-2020-000378

PATIENT
  Sex: Female

DRUGS (1)
  1. RHOGAM ULTRA?FILTERED PLUS [Suspect]
     Active Substance: HUMAN RHO(D) IMMUNE GLOBULIN
     Indication: ABORTION SPONTANEOUS

REACTIONS (2)
  - False positive investigation result [Unknown]
  - Rhesus antibodies positive [Unknown]
